FAERS Safety Report 6480180-7 (Version None)
Quarter: 2009Q4

REPORT INFORMATION
  Report Type: 
  Country: None (occurrence: None)
  Receive Date: 20091119
  Receipt Date: 20090731
  Transmission Date: 20100525
  Serious: No
  Sender: FDA-Public Use
  Company Number: WAES 0908USA00081

PATIENT
  Age: 73 Year
  Sex: Female
  Weight: 95.709 kg

DRUGS (11)
  1. JANUVIA [Suspect]
     Indication: TYPE 2 DIABETES MELLITUS
     Dosage: 100 MG/DAILY/PO
     Route: 048
     Dates: start: 20090701, end: 20090814
  2. BENICAR [Concomitant]
  3. RESTORIL [Concomitant]
  4. FELODIPINE [Concomitant]
  5. FEXOFENADINE HCL [Concomitant]
  6. GLIMEPIRIDE [Concomitant]
  7. HYDROCHLOROTHIAZIDE [Concomitant]
  8. LOVASTATIN [Concomitant]
  9. METFORMIN HCL [Concomitant]
  10. METOPROLOL [Concomitant]
  11. POTASSIUM CHLORIDE [Concomitant]

REACTIONS (2)
  - OEDEMA PERIPHERAL [None]
  - RASH PRURITIC [None]
